FAERS Safety Report 6188972-9 (Version None)
Quarter: 2009Q2

REPORT INFORMATION
  Report Type: 
  Country: None (occurrence: None)
  Receive Date: 20090512
  Receipt Date: 20090512
  Transmission Date: 20091009
  Serious: No
  Sender: FDA-Public Use
  Company Number: None

PATIENT
  Age: 50 Year
  Sex: Female
  Weight: 63.5036 kg

DRUGS (1)
  1. NORCO [Suspect]
     Indication: MENISCUS LESION
     Dosage: 1 4 TIMES DAILY PO
     Route: 048
     Dates: start: 20090424, end: 20090507

REACTIONS (1)
  - DRUG INEFFECTIVE [None]
